FAERS Safety Report 10558871 (Version 2)
Quarter: 2014Q4

REPORT INFORMATION
  Report Type: Spontaneous
  Country: DK (occurrence: DK)
  Receive Date: 20141101
  Receipt Date: 20141125
  Transmission Date: 20150529
  Serious: Yes (Hospitalization)
  Sender: FDA-Public Use
  Company Number: DK-AUROBINDO-AUR-APL-2014-11460

PATIENT
  Age: 71 Year
  Sex: Male

DRUGS (3)
  1. AMLODIPIN                          /00972401/ [Interacting]
     Active Substance: AMLODIPINE BESYLATE
     Indication: HYPERTENSION
     Dosage: 10 MG, DAILY
     Route: 065
  2. ROXITHROMYCIN [Interacting]
     Active Substance: ROXITHROMYCIN
     Indication: INFECTION
     Dosage: 300 MG, FOR SEVEN DAYS DAILY
     Route: 065
  3. SIMVASTATIN. [Suspect]
     Active Substance: SIMVASTATIN
     Indication: BLOOD CHOLESTEROL DECREASED
     Dosage: 80 MG, DAILY
     Route: 065

REACTIONS (11)
  - Myoglobin blood increased [Recovering/Resolving]
  - Myalgia [Recovering/Resolving]
  - Hyporeflexia [Recovering/Resolving]
  - Weight decreased [Recovering/Resolving]
  - Muscle atrophy [Recovering/Resolving]
  - Myopathy [Recovering/Resolving]
  - Abasia [Recovering/Resolving]
  - Asthenia [Recovering/Resolving]
  - Blood creatine phosphokinase increased [Recovering/Resolving]
  - Drug interaction [Recovering/Resolving]
  - Rhabdomyolysis [Recovering/Resolving]
